FAERS Safety Report 6419181-3 (Version None)
Quarter: 2009Q4

REPORT INFORMATION
  Report Type: 
  Country: None (occurrence: None)
  Receive Date: 20091029
  Receipt Date: 20091026
  Transmission Date: 20100525
  Serious: Yes (Other)
  Sender: FDA-Public Use
  Company Number: ZA-ROCHE-664423

PATIENT
  Sex: Female
  Weight: 62 kg

DRUGS (16)
  1. KYTRIL [Suspect]
     Indication: ANAESTHESIA
     Route: 042
     Dates: start: 20090914, end: 20090914
  2. SUPRANE [Suspect]
     Indication: ANAESTHESIA
     Route: 065
     Dates: start: 20090914, end: 20090914
  3. DIPRIVAN [Suspect]
     Indication: ANAESTHESIA
     Route: 065
     Dates: start: 20090914, end: 20090914
  4. LAMOTRIGINE [Concomitant]
  5. GLUCOPHAGE [Concomitant]
  6. MORPHINE [Concomitant]
  7. ULTIVA [Concomitant]
  8. DECADRON [Concomitant]
  9. TRACRIUM [Concomitant]
  10. NEOSTIGMINE [Concomitant]
  11. ROBINUL [Concomitant]
  12. MEFOXIN [Concomitant]
  13. RIVOTRIL [Concomitant]
  14. MIDAZOLAM HCL [Concomitant]
  15. EPILIM [Concomitant]
  16. PHENYTOIN SODIUM CAP [Concomitant]

REACTIONS (1)
  - GRAND MAL CONVULSION [None]
